FAERS Safety Report 7659725-7 (Version None)
Quarter: 2011Q3

REPORT INFORMATION
  Report Type: 
  Country: None (occurrence: None)
  Receive Date: 20110805
  Receipt Date: 20100914
  Transmission Date: 20111222
  Serious: No
  Sender: FDA-Public Use
  Company Number: US-ABBOTT-10P-163-0671608-00

PATIENT
  Sex: Female
  Weight: 53.572 kg

DRUGS (2)
  1. LAMICTAL [Suspect]
     Indication: PRODUCT USED FOR UNKNOWN INDICATION
  2. DEPAKOTE ER [Suspect]
     Indication: CONVULSION

REACTIONS (2)
  - DRUG LEVEL INCREASED [None]
  - INSOMNIA [None]
